FAERS Safety Report 14263175 (Version 1)
Quarter: 2017Q4

REPORT INFORMATION
  Report Type: Spontaneous
  Country: DE (occurrence: DE)
  Receive Date: 20171208
  Receipt Date: 20171208
  Transmission Date: 20180321
  Serious: Yes (Other)
  Sender: FDA-Public Use
  Company Number: DE-WEST-WARD PHARMACEUTICALS CORP.-DE-H14001-17-04721

PATIENT
  Age: 56 Year
  Sex: Male
  Weight: 73 kg

DRUGS (3)
  1. CARBOPLATIN. [Suspect]
     Active Substance: CARBOPLATIN
     Indication: NON-SMALL CELL LUNG CANCER
     Dosage: 6 MG X MIN/ML
     Route: 041
     Dates: start: 20170602, end: 20170908
  2. ABRAXANE [Suspect]
     Active Substance: PACLITAXEL
     Indication: NON-SMALL CELL LUNG CANCER
     Route: 041
     Dates: start: 20170602
  3. ABRAXANE [Suspect]
     Active Substance: PACLITAXEL
     Route: 041
     Dates: start: 20170804, end: 20170915

REACTIONS (4)
  - Polyneuropathy [Unknown]
  - Skin irritation [Unknown]
  - Nail discomfort [Unknown]
  - Headache [Unknown]

NARRATIVE: CASE EVENT DATE: 20170908
